FAERS Safety Report 9009720 (Version 1)
Quarter: 2013Q1

REPORT INFORMATION
  Report Type: Spontaneous
  Country: US (occurrence: US)
  Receive Date: 20130110
  Receipt Date: 20130110
  Transmission Date: 20140127
  Serious: Yes (Hospitalization)
  Sender: FDA-Public Use
  Company Number: US-US-EMD SERONO, INC.-235939K06USA

PATIENT
  Age: 45 Year
  Sex: Female

DRUGS (2)
  1. REBIF [Suspect]
     Indication: MULTIPLE SCLEROSIS
     Route: 058
     Dates: start: 20060609, end: 200608
  2. REBIF [Suspect]
     Route: 058
     Dates: start: 200609

REACTIONS (3)
  - Blindness [Recovered/Resolved]
  - Chromatopsia [Unknown]
  - Tunnel vision [Unknown]
